FAERS Safety Report 20777371 (Version 1)
Quarter: 2022Q2

REPORT INFORMATION
  Report Type: Spontaneous
  Country: US (occurrence: US)
  Receive Date: 20220503
  Receipt Date: 20220503
  Transmission Date: 20220721
  Serious: Yes (Other)
  Sender: FDA-Public Use
  Company Number: US-GLAXOSMITHKLINE-US2022AMR072501

PATIENT
  Sex: Male

DRUGS (1)
  1. WELLBUTRIN XL [Suspect]
     Active Substance: BUPROPION HYDROCHLORIDE
     Indication: Depression
     Dosage: UNK

REACTIONS (7)
  - Suicidal ideation [Unknown]
  - Malaise [Unknown]
  - Nightmare [Unknown]
  - Blood blister [Unknown]
  - Mood altered [Unknown]
  - Rash [Unknown]
  - Wrong technique in product usage process [Unknown]
